FAERS Safety Report 25139222 (Version 3)
Quarter: 2025Q2

REPORT INFORMATION
  Report Type: Spontaneous
  Country: JP (occurrence: JP)
  Receive Date: 20250331
  Receipt Date: 20250509
  Transmission Date: 20250717
  Serious: Yes (Hospitalization, Other)
  Sender: GENMAB
  Company Number: JP-GENMAB-2025-00812

PATIENT
  Age: 76 Year
  Sex: Female

DRUGS (1)
  1. EPKINLY [Suspect]
     Active Substance: EPCORITAMAB-BYSP
     Indication: Diffuse large B-cell lymphoma recurrent
     Route: 058

REACTIONS (5)
  - Cholecystitis [Recovering/Resolving]
  - Diffuse large B-cell lymphoma recurrent [Unknown]
  - Blood immunoglobulin G decreased [Unknown]
  - Cough [Unknown]
  - SARS-CoV-2 test positive [Unknown]
